FAERS Safety Report 18902768 (Version 1)
Quarter: 2021Q1

REPORT INFORMATION
  Report Type: Spontaneous
  Country: US (occurrence: US)
  Receive Date: 20210216
  Receipt Date: 20210216
  Transmission Date: 20210420
  Serious: Yes (Death, Hospitalization)
  Sender: FDA-Public Use
  Company Number: None

PATIENT
  Age: 77 Year
  Sex: Female
  Weight: 85.8 kg

DRUGS (12)
  1. KEPPRA 1500MG QHS [Concomitant]
     Dates: start: 20210103, end: 20210106
  2. VIT C 500MG + D3 1000 UNITS + ZINC 220MG DAILY [Concomitant]
     Dates: start: 20210103, end: 20210106
  3. LEXAPRO 5MG QHS [Concomitant]
     Dates: start: 20210103, end: 20210106
  4. LISINOPRIL 20MG QHS [Concomitant]
     Dates: start: 20210103, end: 20210106
  5. FAMOTIDINE 20MG DAILY [Concomitant]
     Dates: start: 20210103, end: 20210106
  6. ATORVASTATIN 40MG QHS [Concomitant]
     Dates: start: 20210103, end: 20210106
  7. DEXAMETHASONE 6MG PO DAILY [Concomitant]
     Active Substance: DEXAMETHASONE
     Dates: start: 20210104, end: 20210106
  8. ENOXAPARIN 30MG SQ Q12H [Concomitant]
     Dates: start: 20210103, end: 20210106
  9. MULTIVITAMIN 1 TAB PO DAILY [Concomitant]
     Dates: start: 20210103, end: 20210106
  10. ANASTROZOLE 1MG QHS [Concomitant]
     Dates: start: 20210103, end: 20210106
  11. REMDESIVIR. [Suspect]
     Active Substance: REMDESIVIR
     Indication: COVID-19 PNEUMONIA
     Dosage: ?          OTHER FREQUENCY:200MG X1, 100MG/D;?
     Route: 042
     Dates: start: 20210103, end: 20210105
  12. AMLODIPINE 5MG DAILY [Concomitant]
     Dates: start: 20210104, end: 20210106

REACTIONS (9)
  - Decreased appetite [None]
  - Respiratory failure [None]
  - Diarrhoea [None]
  - Hypotension [None]
  - Palliative care [None]
  - Asthenia [None]
  - Vomiting [None]
  - Blood creatinine increased [None]
  - Pneumonia aspiration [None]

NARRATIVE: CASE EVENT DATE: 20210111
